FAERS Safety Report 5105644-X (Version None)
Quarter: 2006Q3

REPORT INFORMATION
  Report Type: 
  Country: None (occurrence: None)
  Receive Date: 20060731
  Receipt Date: 20060413
  Transmission Date: 20061208
  Serious: Yes (Other)
  Sender: FDA-Public Use
  Company Number: US-JNJFOC-20060403451

PATIENT
  Age: 11 Year
  Sex: Male
  Weight: 112.0385 kg

DRUGS (1)
  1. RISPERDAL [Suspect]
     Indication: AUTISM
     Dosage: 15 MG, IN 1 DAY, ORAL
     Route: 048
     Dates: start: 20040101, end: 20040101

REACTIONS (3)
  - BLOOD PROLACTIN INCREASED [None]
  - INCREASED APPETITE [None]
  - WEIGHT INCREASED [None]
